FAERS Safety Report 26126948 (Version 3)
Quarter: 2025Q4

REPORT INFORMATION
  Report Type: Spontaneous
  Country: CN (occurrence: CN)
  Receive Date: 20251205
  Receipt Date: 20251229
  Transmission Date: 20260118
  Serious: Yes (Hospitalization, Other)
  Sender: NOVO NORDISK
  Company Number: CN-NOVOPROD-1576130

PATIENT
  Age: 26 Year
  Sex: Female

DRUGS (5)
  1. RYZODEG 70/30 [Suspect]
     Active Substance: INSULIN ASPART\INSULIN DEGLUDEC
     Indication: Type 2 diabetes mellitus
     Dosage: 34 IU, QD (20U BEFORE LUNCH, 14U BEFORE DINNER)
     Route: 058
     Dates: start: 20250911, end: 20250918
  2. OZEMPIC [Suspect]
     Active Substance: SEMAGLUTIDE
     Dosage: 0.25 MG, QW
     Dates: start: 20250924
  3. OZEMPIC [Suspect]
     Active Substance: SEMAGLUTIDE
     Indication: Type 2 diabetes mellitus
     Dosage: 0.25 MG, QW
     Dates: start: 20250917
  4. OZEMPIC [Suspect]
     Active Substance: SEMAGLUTIDE
     Dosage: 0.5 MG, QW
     Dates: start: 20251006, end: 20251006
  5. METFORMIN HYDROCHLORIDE\PIOGLITAZONE HYDROCHLORIDE [Concomitant]
     Active Substance: METFORMIN HYDROCHLORIDE\PIOGLITAZONE HYDROCHLORIDE
     Indication: Type 2 diabetes mellitus
     Dosage: 15 MG, BID

REACTIONS (8)
  - Depression [Not Recovered/Not Resolved]
  - Suicide attempt [Unknown]
  - Diabetic ketosis [Unknown]
  - Gastritis erosive [Not Recovered/Not Resolved]
  - Constipation [Unknown]
  - Hypophagia [Not Recovered/Not Resolved]
  - Retching [Not Recovered/Not Resolved]
  - Wrong technique in product usage process [Recovered/Resolved]

NARRATIVE: CASE EVENT DATE: 20250911
